FAERS Safety Report 15134763 (Version 2)
Quarter: 2018Q3

REPORT INFORMATION
  Report Type: Spontaneous
  Country: HR (occurrence: HR)
  Receive Date: 20180712
  Receipt Date: 20180717
  Transmission Date: 20181010
  Serious: Yes (Hospitalization)
  Sender: FDA-Public Use
  Company Number: PHHY2018HR039221

PATIENT
  Sex: Male

DRUGS (1)
  1. COSENTYX [Suspect]
     Active Substance: SECUKINUMAB
     Indication: PSORIASIS
     Dosage: 300 MG, QMO
     Route: 058
     Dates: start: 201601, end: 20180521

REACTIONS (2)
  - Papillary thyroid cancer [Recovered/Resolved with Sequelae]
  - Metastases to lymph nodes [Recovered/Resolved with Sequelae]

NARRATIVE: CASE EVENT DATE: 2018
